FAERS Safety Report 18258507 (Version 2)
Quarter: 2022Q3

REPORT INFORMATION
  Report Type: Spontaneous
  Country: IE (occurrence: IE)
  Receive Date: 20200911
  Receipt Date: 20220713
  Transmission Date: 20221027
  Serious: Yes (Other)
  Sender: FDA-Public Use
  Company Number: IE-GSKCCFEMEA-CASE-01026525_AE-33725

PATIENT

DRUGS (1)
  1. DUTASTERIDE\TAMSULOSIN [Suspect]
     Active Substance: DUTASTERIDE\TAMSULOSIN
     Indication: Prostatomegaly
     Dosage: UNK

REACTIONS (3)
  - Foreign body in throat [Unknown]
  - Dysphagia [Unknown]
  - Product dose omission issue [Unknown]
